FAERS Safety Report 8034193-4 (Version None)
Quarter: 2012Q1

REPORT INFORMATION
  Report Type: 
  Country: None (occurrence: None)
  Receive Date: 20120110
  Receipt Date: 20111227
  Transmission Date: 20120608
  Serious: Yes (Disabling)
  Sender: FDA-Public Use
  Company Number: ES-BAYER-200311555GDS

PATIENT
  Age: 77 Year
  Sex: Female

DRUGS (8)
  1. PRAVASTATIN [Concomitant]
     Indication: CARDIAC DISORDER
     Dosage: 10 MG (DAILY DOSE), , ORAL
     Route: 048
     Dates: start: 20010201
  2. ACOVIL [Concomitant]
     Indication: ESSENTIAL HYPERTENSION
     Dosage: 5 MG (DAILY DOSE), BID, ORAL
     Route: 048
     Dates: start: 20010201
  3. LORAZEPAM [Concomitant]
     Indication: NEUROSIS
     Dosage: 1 MG (DAILY DOSE), , ORAL
     Route: 048
     Dates: start: 20010201
  4. DEXAMETHASONE [Concomitant]
     Indication: IRIDOCYCLITIS
     Route: 065
  5. TENORMIN [Concomitant]
     Indication: ESSENTIAL HYPERTENSION
     Dosage: 50 MG (DAILY DOSE), , ORAL
     Route: 048
     Dates: start: 20010201
  6. MOXIFLOXACIN [Suspect]
     Indication: PNEUMONIA
     Dosage: 400 MG (DAILY DOSE), QD, ORAL
     Route: 048
     Dates: start: 20020213, end: 20020223
  7. ASPIRIN [Concomitant]
     Indication: CARDIAC DISORDER
     Dosage: 100 MG (DAILY DOSE), , ORAL
     Route: 048
     Dates: start: 20010201
  8. ATROPINE [Concomitant]
     Indication: IRIDOCYCLITIS
     Route: 065

REACTIONS (1)
  - IRIDOCYCLITIS [None]
